APPROVED DRUG PRODUCT: CEFTRIAXONE
Active Ingredient: CEFTRIAXONE SODIUM
Strength: EQ 2GM BASE/VIAL
Dosage Form/Route: INJECTABLE;INTRAMUSCULAR, INTRAVENOUS
Application: A065268 | Product #002
Applicant: FACTA FARMACEUTICI SPA
Approved: Feb 28, 2007 | RLD: No | RS: No | Type: DISCN